FAERS Safety Report 10774783 (Version 4)
Quarter: 2016Q3

REPORT INFORMATION
  Report Type: Spontaneous
  Country: US (occurrence: US)
  Receive Date: 20150209
  Receipt Date: 20160901
  Transmission Date: 20161109
  Serious: Yes (Other)
  Sender: FDA-Public Use
  Company Number: US-ASTRAZENECA-2015SE12242

PATIENT
  Age: 557 Month
  Sex: Female
  Weight: 95.3 kg

DRUGS (40)
  1. BYETTA [Suspect]
     Active Substance: EXENATIDE
     Indication: TYPE 2 DIABETES MELLITUS
     Dosage: 10.0UG UNKNOWN
     Route: 065
     Dates: start: 20100425
  2. JANUVIA [Concomitant]
     Active Substance: SITAGLIPTIN PHOSPHATE
  3. COLACE [Concomitant]
     Active Substance: DOCUSATE SODIUM
     Route: 065
  4. CLINDAMYCIN HCL [Concomitant]
     Active Substance: CLINDAMYCIN HYDROCHLORIDE
     Dosage: 150.0MG UNKNOWN
     Dates: start: 20050201
  5. PRANDIN [Concomitant]
     Active Substance: REPAGLINIDE
     Dosage: 0.5MG UNKNOWN
     Dates: start: 20101005
  6. ENALAPRIL MALEATE. [Concomitant]
     Active Substance: ENALAPRIL MALEATE
  7. SYNTHROID [Concomitant]
     Active Substance: LEVOTHYROXINE SODIUM
  8. LIPITOR [Concomitant]
     Active Substance: ATORVASTATIN CALCIUM
     Dosage: 150 MCG
     Route: 065
  9. ACETAMINOPHEN-CODEINE [Concomitant]
     Active Substance: ACETAMINOPHEN\CODEINE PHOSPHATE
     Dosage: 300MG-30MG
     Dates: start: 20100802
  10. VAGIFEM/ESTRACE [Concomitant]
     Dosage: 10.0UG UNKNOWN
     Dates: start: 20100929
  11. PREDNISONE. [Concomitant]
     Active Substance: PREDNISONE
     Dosage: 5.0MG UNKNOWN
     Dates: start: 20120207
  12. BUPROPION XL [Concomitant]
     Active Substance: BUPROPION
     Dosage: 150.0MG UNKNOWN
     Dates: start: 20120512
  13. MELOXICAM. [Concomitant]
     Active Substance: MELOXICAM
  14. FLUCONAZOLE. [Concomitant]
     Active Substance: FLUCONAZOLE
  15. BYETTA [Suspect]
     Active Substance: EXENATIDE
     Indication: TYPE 2 DIABETES MELLITUS
     Route: 065
     Dates: start: 201001, end: 201008
  16. ONDANSETRON [Concomitant]
     Active Substance: ONDANSETRON
  17. IBUPROFEN. [Concomitant]
     Active Substance: IBUPROFEN
     Route: 065
     Dates: start: 20030121
  18. FLUCONAZOLE. [Concomitant]
     Active Substance: FLUCONAZOLE
     Dosage: 150.0MG UNKNOWN
     Dates: start: 20100723
  19. EVOXAC [Concomitant]
     Active Substance: CEVIMELINE HYDROCHLORIDE
     Dosage: 30.0MG UNKNOWN
     Dates: start: 20110505
  20. BYETTA [Suspect]
     Active Substance: EXENATIDE
     Indication: TYPE 2 DIABETES MELLITUS
     Dosage: 10 MCG/0.04 ML BID UNKNOWN
     Route: 058
     Dates: start: 20100809
  21. VASOTEC [Concomitant]
     Active Substance: ENALAPRIL MALEATE
     Dosage: 10.0MG UNKNOWN
     Dates: start: 20100723
  22. HYDRODIURIL [Concomitant]
     Active Substance: HYDROCHLOROTHIAZIDE
  23. GLUCOPHAGE [Concomitant]
     Active Substance: METFORMIN HYDROCHLORIDE
     Dosage: 150 MCG
     Route: 065
  24. NASONEX [Concomitant]
     Active Substance: MOMETASONE FUROATE
     Dosage: 50.0UG UNKNOWN
     Dates: start: 20110504
  25. NEXIUM [Concomitant]
     Active Substance: ESOMEPRAZOLE MAGNESIUM
     Route: 065
     Dates: start: 20131011
  26. SINGULAIR [Concomitant]
     Active Substance: MONTELUKAST SODIUM
     Route: 065
     Dates: start: 20100723
  27. ECOTRIN [Concomitant]
     Active Substance: ASPIRIN
     Route: 065
  28. FENOFIBRATE. [Concomitant]
     Active Substance: FENOFIBRATE
     Route: 065
  29. POTASSIUM CHLORIDE. [Concomitant]
     Active Substance: POTASSIUM CHLORIDE
     Dosage: 20.0MEQ UNKNOWN
     Dates: start: 20100723
  30. STROVITE [Concomitant]
     Dosage: 500-0.5 MG DAILY
     Route: 048
  31. ROXICODONE [Concomitant]
     Active Substance: OXYCODONE HYDROCHLORIDE
     Dosage: 5.0MG AS REQUIRED
     Route: 048
     Dates: start: 20131210
  32. LANTUS SOLOSTAR [Concomitant]
     Active Substance: INSULIN GLARGINE
     Dosage: 100/ML
     Dates: start: 20120629
  33. NYSTATIN-TRIAMCINOLONE [Concomitant]
     Dosage: 100000-0.1
     Dates: start: 20120629
  34. COREG [Concomitant]
     Active Substance: CARVEDILOL
     Dosage: 12.5MG UNKNOWN
     Dates: start: 20100723
  35. LEVAQUIN [Concomitant]
     Active Substance: LEVOFLOXACIN
     Dosage: 500.0MG UNKNOWN
     Dates: start: 20110610
  36. CARVEDILOL. [Concomitant]
     Active Substance: CARVEDILOL
  37. CALCIUM [Concomitant]
     Active Substance: CALCIUM
  38. QUETIAPINE FUMARATE. [Concomitant]
     Active Substance: QUETIAPINE FUMARATE
     Dosage: 25.0MG UNKNOWN
     Dates: start: 20120512
  39. CLONAZEPAM. [Concomitant]
     Active Substance: CLONAZEPAM
     Dosage: 0.5MG UNKNOWN
     Dates: start: 20120512
  40. CYCLOBENZAPRINE [Concomitant]
     Active Substance: CYCLOBENZAPRINE

REACTIONS (5)
  - Follicular thyroid cancer [Unknown]
  - Goitre [Unknown]
  - Papillary thyroid cancer [Unknown]
  - Hypothyroidism [Unknown]
  - Autoimmune thyroiditis [Unknown]

NARRATIVE: CASE EVENT DATE: 201008
